FAERS Safety Report 5289366-0 (Version None)
Quarter: 2007Q2

REPORT INFORMATION
  Report Type: 
  Country: None (occurrence: None)
  Receive Date: 20070404
  Receipt Date: 20070404
  Transmission Date: 20071010
  Serious: Yes (Life-Threatening)
  Sender: FDA-Public Use
  Company Number: None

PATIENT
  Sex: Female
  Weight: 87.5442 kg

DRUGS (2)
  1. REMICADE [Suspect]
     Indication: PSORIATIC ARTHROPATHY
     Dosage: 600 MG Q4WKS IV
     Route: 042
     Dates: start: 20050201
  2. METHOTREXATE [Suspect]
     Dosage: 25MG Q WK  SQ
     Route: 058
     Dates: start: 20040801

REACTIONS (1)
  - NON-HODGKIN'S LYMPHOMA [None]
